FAERS Safety Report 5330707-3 (Version None)
Quarter: 2007Q2

REPORT INFORMATION
  Report Type: 
  Country: None (occurrence: None)
  Receive Date: 20070522
  Receipt Date: 20070515
  Transmission Date: 20071010
  Serious: Yes (Death, Life-Threatening, Hospitalization, Other)
  Sender: FDA-Public Use
  Company Number: PHHO2005DE11666

PATIENT
  Age: 64 Year
  Sex: Male

DRUGS (24)
  1. CYCLOSPORINE [Suspect]
     Indication: RENAL TRANSPLANT
     Dosage: 170 MG, BID
     Route: 048
     Dates: start: 20040630, end: 20041104
  2. DACLIZUMAB [Suspect]
     Indication: RENAL TRANSPLANT
     Dosage: 2 MG/KG, ONCE/SINGLE
     Route: 042
     Dates: start: 20040630
  3. MYCOPHENOLATE MOFETIL [Suspect]
     Indication: RENAL TRANSPLANT
     Dosage: 1 G, BID
     Route: 048
     Dates: start: 20040630
  4. MYCOPHENOLATE MOFETIL [Suspect]
     Dosage: 250 MG, BID
     Route: 048
  5. PREDNISOLONE [Suspect]
     Indication: RENAL TRANSPLANT
     Dosage: 250 MG, QD
     Dates: start: 20040630, end: 20040701
  6. PREDNISOLONE [Suspect]
     Dosage: 75 MG, QD
     Route: 048
     Dates: start: 20050701
  7. PREDNISOLONE [Suspect]
     Dosage: 250 MG, ONCE/SINGLE
     Route: 042
  8. TACROLIMUS [Suspect]
     Indication: RENAL TRANSPLANT
     Dosage: UNK, UNK
     Dates: start: 20041104
  9. PANTOZOL [Concomitant]
  10. METOPROLOL SUCCINATE [Concomitant]
  11. EUTHYROX [Concomitant]
  12. SPASMEX [Concomitant]
  13. UNACID [Concomitant]
  14. KEPINOL [Concomitant]
  15. ACETYLCYSTEINE [Concomitant]
  16. ASPIRIN [Concomitant]
  17. CIPROFLOXACIN [Concomitant]
  18. DIGITOXIN TAB [Concomitant]
  19. FUROSEMIDE [Concomitant]
  20. FLUVASTATIN [Concomitant]
  21. KALIUM-DURILES [Concomitant]
  22. RISEDRONATE SODIUM [Concomitant]
  23. TEMAZEPAM [Concomitant]
  24. ISONIAZID [Concomitant]

REACTIONS (14)
  - ABDOMINAL HERNIA [None]
  - ABDOMINAL HERNIA REPAIR [None]
  - ABDOMINAL STRANGULATED HERNIA [None]
  - ANGINA PECTORIS [None]
  - AORTIC VALVE STENOSIS [None]
  - ATRIAL FIBRILLATION [None]
  - DRUG TOXICITY [None]
  - GASTROINTESTINAL NECROSIS [None]
  - HYPERVOLAEMIA [None]
  - INCISIONAL DRAINAGE [None]
  - KIDNEY TRANSPLANT REJECTION [None]
  - MYOCARDIAL INFARCTION [None]
  - SEROMA [None]
  - TACHYARRHYTHMIA [None]
